FAERS Safety Report 7352518-X (Version None)
Quarter: 2011Q1

REPORT INFORMATION
  Report Type: 
  Country: None (occurrence: None)
  Receive Date: 20110315
  Receipt Date: 20110308
  Transmission Date: 20110831
  Serious: Yes (Hospitalization)
  Sender: FDA-Public Use
  Company Number: TR-US-EMD SERONO, INC.-7046395

PATIENT
  Sex: Female
  Weight: 55 kg

DRUGS (4)
  1. BENEXOL [Concomitant]
  2. KLOROBEN [Concomitant]
  3. MINOSET [Concomitant]
     Indication: ANALGESIC THERAPY
  4. REBIF [Suspect]
     Indication: MULTIPLE SCLEROSIS
     Route: 058
     Dates: start: 20060501

REACTIONS (5)
  - HEADACHE [None]
  - TREMOR [None]
  - ASTHENIA [None]
  - APHTHOUS STOMATITIS [None]
  - HYPOAESTHESIA [None]
